FAERS Safety Report 9884587 (Version 1)
Quarter: 2014Q1

REPORT INFORMATION
  Report Type: Spontaneous
  Country: US (occurrence: US)
  Receive Date: 20140210
  Receipt Date: 20140210
  Transmission Date: 20141002
  Serious: No
  Sender: FDA-Public Use
  Company Number: US-ALLERGAN-1320117US

PATIENT
  Sex: 0

DRUGS (3)
  1. BOTOX [Suspect]
     Indication: PRODUCT USED FOR UNKNOWN INDICATION
     Dosage: UNK
     Dates: start: 20131218, end: 20131218
  2. JUVEDERM [Suspect]
     Dosage: UNK
     Dates: start: 20131218, end: 20131218
  3. JUVEDERM [Suspect]
     Dosage: UNK
     Dates: start: 20131211, end: 20131211

REACTIONS (5)
  - Skin disorder [Unknown]
  - Feeling hot [Unknown]
  - Contusion [Unknown]
  - Swelling [Unknown]
  - Facial pain [Unknown]
